FAERS Safety Report 17350050 (Version 2)
Quarter: 2020Q3

REPORT INFORMATION
  Report Type: Spontaneous
  Country: TW (occurrence: TW)
  Receive Date: 20200130
  Receipt Date: 20200806
  Transmission Date: 20201102
  Serious: Yes (Other)
  Sender: FDA-Public Use
  Company Number: TW-009507513-2001TWN010048

PATIENT
  Age: 29 Year
  Sex: Female
  Weight: 62 kg

DRUGS (1)
  1. BRIDION [Suspect]
     Active Substance: SUGAMMADEX
     Indication: NEUROMUSCULAR BLOCKADE REVERSAL
     Dosage: 3.2 MILLIGRAM/KILOGRAM, UNK
     Dates: start: 2019

REACTIONS (1)
  - Negative pressure pulmonary oedema [Recovering/Resolving]

NARRATIVE: CASE EVENT DATE: 2019
